FAERS Safety Report 8223584-4 (Version None)
Quarter: 2012Q1

REPORT INFORMATION
  Report Type: 
  Country: None (occurrence: None)
  Receive Date: 20120321
  Receipt Date: 20120315
  Transmission Date: 20120608
  Serious: Yes (Other)
  Sender: FDA-Public Use
  Company Number: US-PFIZER INC-2012069032

PATIENT
  Age: 21 Year
  Sex: Female

DRUGS (1)
  1. ALSUMA [Suspect]
     Indication: MIGRAINE
     Dosage: UNK MG/ML, UNK

REACTIONS (2)
  - CHEST DISCOMFORT [None]
  - INJECTION SITE URTICARIA [None]
